FAERS Safety Report 6241041-1 (Version None)
Quarter: 2009Q2

REPORT INFORMATION
  Report Type: 
  Country: None (occurrence: None)
  Receive Date: 20090619
  Receipt Date: 20090619
  Transmission Date: 20091009
  Serious: Yes (Disabling, Other)
  Sender: FDA-Public Use
  Company Number: None

PATIENT
  Age: 44 Year
  Sex: Female
  Weight: 58.9676 kg

DRUGS (1)
  1. ZICAM, COLD REMEDEY (NO DRIP NASAL LIQUID GEL ? MATRIX [Suspect]
     Indication: NASOPHARYNGITIS
     Dosage: FOLLOWED DIRECTIONS ON THE BOTTLE ONCE NASAL GEL SPRAY MARCH OR APRIL OF 2006
     Route: 045

REACTIONS (8)
  - ABDOMINAL DISCOMFORT [None]
  - AGEUSIA [None]
  - ANOSMIA [None]
  - BURNING SENSATION [None]
  - DYSGEUSIA [None]
  - MIGRAINE [None]
  - NASAL DISCOMFORT [None]
  - PAROSMIA [None]
